FAERS Safety Report 15584870 (Version 2)
Quarter: 2019Q1

REPORT INFORMATION
  Report Type: Spontaneous
  Country: US (occurrence: US)
  Receive Date: 20181105
  Receipt Date: 20190103
  Transmission Date: 20190417
  Serious: Yes (Hospitalization)
  Sender: FDA-Public Use
  Company Number: US-GLENMARK PHARMACEUTICALS-2018GMK038073

PATIENT

DRUGS (1)
  1. NAPROXEN SODIUM. [Suspect]
     Active Substance: NAPROXEN SODIUM
     Indication: LIMB INJURY
     Dosage: 500 MG, BID
     Route: 048
     Dates: start: 20180730, end: 20180814

REACTIONS (7)
  - Haematochezia [Recovered/Resolved]
  - Gastrointestinal inflammation [Recovered/Resolved]
  - Colitis [Recovered/Resolved]
  - Intestinal perforation [Recovered/Resolved]
  - Gastrointestinal infection [Recovered/Resolved]
  - Abdominal pain [Recovered/Resolved]
  - Intestinal haemorrhage [Recovered/Resolved]

NARRATIVE: CASE EVENT DATE: 201808
